FAERS Safety Report 22142779 (Version 1)
Quarter: 2023Q1

REPORT INFORMATION
  Report Type: Spontaneous
  Country: CN (occurrence: None)
  Receive Date: 20230327
  Receipt Date: 20230327
  Transmission Date: 20230418
  Serious: Yes (Hospitalization)
  Sender: FDA-Public Use
  Company Number: CN-Merck Healthcare KGaA-9390508

PATIENT
  Age: 28 Year
  Sex: Female
  Weight: 51 kg

DRUGS (3)
  1. OVIDREL [Suspect]
     Active Substance: CHORIOGONADOTROPIN ALFA
     Indication: Ovulation induction
     Route: 058
     Dates: start: 20230308, end: 20230308
  2. GONAL-F [Suspect]
     Active Substance: FOLLITROPIN
     Indication: Ovulation induction
     Dosage: 200 (UNIT UNSPECIFIED)
     Route: 058
     Dates: start: 20230228, end: 20230303
  3. GONAL-F [Suspect]
     Active Substance: FOLLITROPIN
     Dosage: 75 (UNIT UNSPECIFIED)
     Route: 058
     Dates: start: 20230306, end: 20230307

REACTIONS (3)
  - Pelvic fluid collection [Recovering/Resolving]
  - Ascites [Recovering/Resolving]
  - Ovarian hyperstimulation syndrome [Recovering/Resolving]

NARRATIVE: CASE EVENT DATE: 20230313
